FAERS Safety Report 10232964 (Version 2)
Quarter: 2014Q2

REPORT INFORMATION
  Report Type: Spontaneous
  Country: FI (occurrence: FI)
  Receive Date: 20140612
  Receipt Date: 20140623
  Transmission Date: 20141212
  Serious: Yes (Other)
  Sender: FDA-Public Use
  Company Number: FI-BAYER-2014-085972

PATIENT
  Age: 22 Year
  Sex: Female
  Weight: 60 kg

DRUGS (1)
  1. JAYDESS [Suspect]
     Indication: MENORRHAGIA
     Dosage: 14 MCG/24HR, CONT
     Route: 015
     Dates: start: 201404, end: 20140616

REACTIONS (10)
  - Suicidal ideation [Not Recovered/Not Resolved]
  - Depressed mood [Not Recovered/Not Resolved]
  - Anger [Not Recovered/Not Resolved]
  - Anxiety [Not Recovered/Not Resolved]
  - Anhedonia [Not Recovered/Not Resolved]
  - Hyperhidrosis [Not Recovered/Not Resolved]
  - Procedural vomiting [Recovered/Resolved]
  - Procedural nausea [Recovered/Resolved]
  - Abdominal pain [Recovering/Resolving]
  - Mastoptosis [Not Recovered/Not Resolved]
